FAERS Safety Report 16881342 (Version 1)
Quarter: 2019Q4

REPORT INFORMATION
  Report Type: Spontaneous
  Country: US (occurrence: US)
  Receive Date: 20191003
  Receipt Date: 20191003
  Transmission Date: 20200122
  Serious: Yes (Hospitalization)
  Sender: FDA-Public Use
  Company Number: US-HIKMA PHARMACEUTICALS USA INC.-US-H14001-19-05066

PATIENT
  Age: 68 Year
  Sex: Male

DRUGS (14)
  1. BLINATUMOMAB [Suspect]
     Active Substance: BLINATUMOMAB
     Indication: PRODUCT USED FOR UNKNOWN INDICATION
     Dosage: REIGMEN C: CONTINUOUS INFUSION ON DAYS ONE TO FOUR (CYCLE 5)
     Route: 042
  2. BLINATUMOMAB [Suspect]
     Active Substance: BLINATUMOMAB
     Dosage: REIGMEN C: CONTINUOUS INFUSION ON DAYS FOUR TO 29 (CYCLE 5) AND DAYS ONE TO 29 (INTRAVENOUSLY, CYCLE
     Route: 042
  3. CYTARABINE. [Suspect]
     Active Substance: CYTARABINE
     Indication: PRODUCT USED FOR UNKNOWN INDICATION
     Dosage: REIGMEN B: 0.5 G/M2; OVER THREE HOURS TWICE A DAY, IN FOUR DOSES ON DAYS TWO AND THREE
     Route: 042
  4. DEXAMETHASONE. [Suspect]
     Active Substance: DEXAMETHASONE
     Indication: PRODUCT USED FOR UNKNOWN INDICATION
     Dosage: REIGMEN B: FOR FOUR DAYS ON DAYS ONE TO FOUR AND DAYS 11-14
     Route: 042
  5. METHOTREXATE. [Suspect]
     Active Substance: METHOTREXATE
     Dosage: REIGMEN A: CONTINUOUS INFUSION OVER 22 HOURS ON DAY ONE
     Route: 042
  6. INOTUZUMAB/OZOGAMICIN [Suspect]
     Active Substance: INOTUZUMAB OZOGAMICIN
     Indication: ACUTE LYMPHOCYTIC LEUKAEMIA
     Dosage: REIGMEN A: OVER ONE HOUR ON DAYS 2 AND 8
     Route: 042
     Dates: start: 20170423
  7. METHOTREXATE. [Suspect]
     Active Substance: METHOTREXATE
     Indication: PRODUCT USED FOR UNKNOWN INDICATION
     Dosage: REIGMEN A: OVER TWO HOURS ON DAY ONE
     Route: 042
  8. PEGFILGRASTIM [Suspect]
     Active Substance: PEGFILGRASTIM
     Indication: PRODUCT USED FOR UNKNOWN INDICATION
     Dosage: REIGMEN A AND B: ON DAY  FOUR
     Route: 058
  9. RITUXIMAB. [Suspect]
     Active Substance: RITUXIMAB
     Dosage: REIGMEN B: ON DAY TWO AND DAY EIGHT (CYCLES TWO AND FOUR)
     Route: 042
  10. MESNA. [Suspect]
     Active Substance: MESNA
     Indication: PRODUCT USED FOR UNKNOWN INDICATION
     Dosage: REIGMEN A: 24 HOURS FOR THREE DAYS ON DAYS ONE TO THREE
     Route: 042
  11. VINCRISTINE [Suspect]
     Active Substance: VINCRISTINE
     Indication: PRODUCT USED FOR UNKNOWN INDICATION
     Dosage: REIGMEN A: DAY ONE AND DAY EIGHT
     Route: 042
  12. RITUXIMAB. [Suspect]
     Active Substance: RITUXIMAB
     Indication: PRODUCT USED FOR UNKNOWN INDICATION
     Dosage: REIGMEN A: ON DAY TWO AND DAY EIGHT (CYCLES ONE AND THREE ONLY)
     Route: 042
  13. INOTUZUMAB/OZOGAMICIN [Suspect]
     Active Substance: INOTUZUMAB OZOGAMICIN
     Dosage: REIGMEN B: ON DAYS TWO AND EIGHT
     Route: 042
  14. CYCLOPHOSPHAMIDE. [Suspect]
     Active Substance: CYCLOPHOSPHAMIDE
     Indication: PRODUCT USED FOR UNKNOWN INDICATION
     Dosage: REIGMEN A: OVER THREE HOURS TWICE A DAY ON DAYS ONE TO THREE
     Route: 042

REACTIONS (1)
  - Myalgia [Recovered/Resolved]

NARRATIVE: CASE EVENT DATE: 20190811
